FAERS Safety Report 4316189-9 (Version None)
Quarter: 2004Q1

REPORT INFORMATION
  Report Type: 
  Country: None (occurrence: None)
  Receive Date: 20040312
  Receipt Date: 20030821
  Transmission Date: 20041129
  Serious: Yes (Death)
  Sender: FDA-Public Use
  Company Number: DE-GLAXOSMITHKLINE-A0423047A

PATIENT
  Age: 89 Year
  Sex: Female

DRUGS (5)
  1. CARVEDILOL [Suspect]
     Indication: CARDIAC FAILURE CONGESTIVE
     Dosage: 6.25MG TWICE PER DAY
     Route: 048
  2. ASPIRIN [Concomitant]
  3. DIURETICS [Concomitant]
  4. SPIRONOLACTONE [Concomitant]
  5. ANTI-DIABETIC MEDICATION [Concomitant]

REACTIONS (2)
  - AORTIC STENOSIS [None]
  - CEREBROVASCULAR ACCIDENT [None]
